FAERS Safety Report 20461865 (Version 3)
Quarter: 2022Q1

REPORT INFORMATION
  Report Type: Spontaneous
  Country: JP (occurrence: JP)
  Receive Date: 20220211
  Receipt Date: 20220302
  Transmission Date: 20220423
  Serious: Yes (Hospitalization)
  Sender: FDA-Public Use
  Company Number: JP-MSD-M2022-04672

PATIENT
  Age: 71 Year
  Sex: Female

DRUGS (4)
  1. MOLNUPIRAVIR [Suspect]
     Active Substance: MOLNUPIRAVIR
     Indication: COVID-19 treatment
     Dosage: UNK
     Route: 048
     Dates: start: 20220202, end: 20220205
  2. THEO-DUR [Suspect]
     Active Substance: THEOPHYLLINE ANHYDROUS
     Indication: Asthma
     Dosage: 100 MILLIGRAM, TID
     Route: 048
  3. ACOTIAMIDE HYDROCHLORIDE [Suspect]
     Active Substance: ACOTIAMIDE HYDROCHLORIDE
     Indication: Abdominal distension
     Dosage: 100 MILLIGRAM, TID
     Route: 048
  4. METOCLOPRAMIDE [Suspect]
     Active Substance: METOCLOPRAMIDE
     Indication: Gastritis
     Dosage: 5 MILLIGRAM, TID
     Route: 048

REACTIONS (4)
  - COVID-19 [Unknown]
  - Oxygen saturation decreased [Recovered/Resolved]
  - Erythema [Recovered/Resolved]
  - Product use issue [Unknown]

NARRATIVE: CASE EVENT DATE: 20220201
